FAERS Safety Report 8245048-4 (Version None)
Quarter: 2012Q1

REPORT INFORMATION
  Report Type: 
  Country: None (occurrence: None)
  Receive Date: 20120329
  Receipt Date: 20101115
  Transmission Date: 20120608
  Serious: Yes (Other)
  Sender: FDA-Public Use
  Company Number: US-GLAXOSMITHKLINE-A0894166A

PATIENT
  Age: 76 Year
  Sex: Female
  Weight: 84.4 kg

DRUGS (4)
  1. AVANDIA [Suspect]
     Indication: DIABETES MELLITUS
     Dosage: 8MG PER DAY
     Route: 048
     Dates: start: 20000101, end: 20070101
  2. PREVACID [Concomitant]
  3. ATACAND [Concomitant]
  4. LEXAPRO [Concomitant]

REACTIONS (2)
  - CARDIOVASCULAR DISORDER [None]
  - CAROTID ARTERY OCCLUSION [None]
